FAERS Safety Report 14277489 (Version 1)
Quarter: 2017Q4

REPORT INFORMATION
  Report Type: Spontaneous
  Country: US (occurrence: US)
  Receive Date: 20171212
  Receipt Date: 20171212
  Transmission Date: 20180321
  Serious: Yes (Other)
  Sender: FDA-Public Use
  Company Number: PHHY2017US180607

PATIENT
  Age: 24 Year
  Sex: Female

DRUGS (3)
  1. N-ACETYLCYSTEINE [Suspect]
     Active Substance: ACETYLCYSTEINE
     Indication: PRODUCT USED FOR UNKNOWN INDICATION
     Route: 042
  2. CLONAZEPAM. [Suspect]
     Active Substance: CLONAZEPAM
     Indication: PRODUCT USED FOR UNKNOWN INDICATION
     Dosage: 0.5 MG, UNK
     Route: 065
  3. ACETAMINOPHEN. [Suspect]
     Active Substance: ACETAMINOPHEN
     Indication: PRODUCT USED FOR UNKNOWN INDICATION
     Dosage: 500 MG, UNK
     Route: 065

REACTIONS (5)
  - Depressed level of consciousness [Unknown]
  - Maternal exposure during pregnancy [Unknown]
  - Premature rupture of membranes [Unknown]
  - Premature delivery [Unknown]
  - Overdose [Unknown]
